FAERS Safety Report 8726924 (Version 2)
Quarter: 2015Q2

REPORT INFORMATION
  Report Type: Report from Study
  Country: US (occurrence: US)
  Receive Date: 20120816
  Receipt Date: 20150626
  Transmission Date: 20150821
  Serious: Yes (Hospitalization)
  Sender: FDA-Public Use
  Company Number: US-ROCHE-1100613

PATIENT
  Age: 61 Year
  Sex: Male

DRUGS (7)
  1. TENORMIN [Concomitant]
     Active Substance: ATENOLOL
  2. ECOTRIN [Concomitant]
     Active Substance: ASPIRIN
  3. ACTIVASE [Suspect]
     Active Substance: ALTEPLASE
     Indication: ACUTE MYOCARDIAL INFARCTION
     Route: 065
  4. COLACE [Concomitant]
     Active Substance: DOCUSATE SODIUM
     Route: 065
  5. HEPARIN [Concomitant]
     Active Substance: HEPARIN SODIUM
     Route: 042
  6. ACTIVASE [Suspect]
     Active Substance: ALTEPLASE
     Route: 042
  7. DEMEROL [Concomitant]
     Active Substance: MEPERIDINE HYDROCHLORIDE
     Route: 042

REACTIONS (3)
  - Bradycardia [Recovered/Resolved]
  - Blood creatine phosphokinase increased [Unknown]
  - Extravasation [Unknown]
